FAERS Safety Report 8271053-8 (Version None)
Quarter: 2012Q2

REPORT INFORMATION
  Report Type: 
  Country: None (occurrence: None)
  Receive Date: 20120410
  Receipt Date: 20120331
  Transmission Date: 20120825
  Serious: No
  Sender: FDA-Public Use
  Company Number: US-BAYER-2012-033500

PATIENT

DRUGS (2)
  1. MUSCLE RELAXER [Concomitant]
     Dosage: UNK
  2. ALEVE (CAPLET) [Suspect]
     Dosage: UNK
     Route: 048
     Dates: start: 20120331

REACTIONS (1)
  - FATIGUE [None]
